FAERS Safety Report 10519665 (Version 2)
Quarter: 2014Q4

REPORT INFORMATION
  Report Type: Spontaneous
  Country: US (occurrence: US)
  Receive Date: 20141015
  Receipt Date: 20141028
  Transmission Date: 20150528
  Serious: No
  Sender: FDA-Public Use
  Company Number: US-PFIZER INC-2014279142

PATIENT
  Age: 73 Year
  Sex: Female

DRUGS (1)
  1. XALKORI [Suspect]
     Active Substance: CRIZOTINIB
     Indication: NON-SMALL CELL LUNG CANCER
     Dosage: 250 MG, 2X/DAY
     Dates: start: 20141003

REACTIONS (3)
  - Heart rate decreased [Unknown]
  - Flushing [Unknown]
  - Feeling hot [Unknown]

NARRATIVE: CASE EVENT DATE: 201410
